FAERS Safety Report 12112986 (Version 1)
Quarter: 2016Q1

REPORT INFORMATION
  Report Type: Spontaneous
  Country: US (occurrence: US)
  Receive Date: 20160225
  Receipt Date: 20160225
  Transmission Date: 20160526
  Serious: Yes (Other)
  Sender: FDA-Public Use
  Company Number: US-JNJFOC-20160212947

PATIENT
  Sex: Female

DRUGS (1)
  1. BENADRYL [Suspect]
     Active Substance: DIPHENHYDRAMINE HYDROCHLORIDE
     Indication: SWOLLEN TONGUE
     Dosage: INTERVAL: 1X
     Route: 048

REACTIONS (3)
  - Off label use [Recovered/Resolved]
  - Swollen tongue [Recovered/Resolved]
  - Product use issue [Recovered/Resolved]
